FAERS Safety Report 20639402 (Version 1)
Quarter: 2022Q1

REPORT INFORMATION
  Report Type: Spontaneous
  Country: AT (occurrence: AT)
  Receive Date: 20220326
  Receipt Date: 20220326
  Transmission Date: 20220423
  Serious: Yes (Other)
  Sender: FDA-Public Use
  Company Number: None

PATIENT
  Age: 62 Year
  Sex: Male

DRUGS (6)
  1. GEMCITABINE [Suspect]
     Active Substance: GEMCITABINE
     Indication: Chemotherapy
     Dosage: UNK, DOSE REDUCTION TO 75 PERCENT FOR CYCLE 5
     Route: 065
  2. GEMCITABINE [Suspect]
     Active Substance: GEMCITABINE
     Route: 065
  3. CISPLATIN [Suspect]
     Active Substance: CISPLATIN
     Indication: Chemotherapy
     Dosage: UNK,DOSE REDUCTION TO 87.5 PERCENT FOR CYCLE 6
     Route: 065
     Dates: end: 20200129
  4. CISPLATIN [Suspect]
     Active Substance: CISPLATIN
     Dosage: UNK
     Route: 065
  5. VINFLUNINE DITARTRATE [Suspect]
     Active Substance: VINFLUNINE DITARTRATE
     Indication: Transitional cell carcinoma
     Dosage: UNK
     Route: 065
  6. COVID-19 VACCINATION ASTRA ZENECA [Concomitant]
     Indication: Product used for unknown indication
     Dosage: UNK
     Route: 065

REACTIONS (17)
  - Metastases to muscle [Unknown]
  - Adrenal gland cancer metastatic [Unknown]
  - Pancytopenia [Recovered/Resolved]
  - Pancytopenia [Unknown]
  - Retroperitoneal neoplasm metastatic [Unknown]
  - Metastases to liver [Unknown]
  - Polyneuropathy [Unknown]
  - Metastases to bone [Unknown]
  - Vomiting [Unknown]
  - Asthenia [Recovered/Resolved]
  - Constipation [Unknown]
  - Haemoglobin decreased [Unknown]
  - Weight decreased [Recovered/Resolved]
  - Alopecia [Recovered/Resolved]
  - Anaemia [Unknown]
  - Gamma-glutamyltransferase increased [Unknown]
  - White blood cell disorder [Unknown]

NARRATIVE: CASE EVENT DATE: 20200101
